APPROVED DRUG PRODUCT: FLUOCINONIDE
Active Ingredient: FLUOCINONIDE
Strength: 0.05%
Dosage Form/Route: SOLUTION;TOPICAL
Application: A209118 | Product #001 | TE Code: AT
Applicant: CHARTWELL RX SCIENCES LLC
Approved: Apr 23, 2018 | RLD: No | RS: No | Type: RX